FAERS Safety Report 15941370 (Version 5)
Quarter: 2023Q1

REPORT INFORMATION
  Report Type: Spontaneous
  Country: US (occurrence: None)
  Receive Date: 20190208
  Receipt Date: 20230127
  Transmission Date: 20230418
  Serious: Yes (Other)
  Sender: FDA-Public Use
  Company Number: 2018SF21191

PATIENT
  Age: 23327 Day
  Sex: Male

DRUGS (28)
  1. NEXIUM [Suspect]
     Active Substance: ESOMEPRAZOLE MAGNESIUM
     Indication: Gastrooesophageal reflux disease
     Route: 048
     Dates: start: 200912, end: 201511
  2. NEXIUM [Suspect]
     Active Substance: ESOMEPRAZOLE MAGNESIUM
     Indication: Gastrooesophageal reflux disease
     Route: 048
     Dates: start: 20010220, end: 20151129
  3. NEXIUM [Suspect]
     Active Substance: ESOMEPRAZOLE MAGNESIUM
     Indication: Gastrooesophageal reflux disease
     Route: 048
     Dates: start: 20151028
  4. NEXIUM [Suspect]
     Active Substance: ESOMEPRAZOLE MAGNESIUM
     Indication: Gastrooesophageal reflux disease
     Route: 048
     Dates: start: 20091223, end: 20151129
  5. NEXIUM 24HR [Suspect]
     Active Substance: ESOMEPRAZOLE MAGNESIUM
     Route: 048
     Dates: start: 200912, end: 201511
  6. NEXIUM 24HR [Suspect]
     Active Substance: ESOMEPRAZOLE MAGNESIUM
     Route: 048
     Dates: start: 20140328, end: 20151129
  7. ATORVASTATIN [Concomitant]
     Active Substance: ATORVASTATIN
     Dates: start: 20111202, end: 20161205
  8. HUMALOG [Concomitant]
     Active Substance: INSULIN LISPRO
  9. TACROLIMUS [Concomitant]
     Active Substance: TACROLIMUS
     Dates: start: 20110617, end: 20161120
  10. FOLIC ACID [Concomitant]
     Active Substance: FOLIC ACID
  11. PREDNISONE [Concomitant]
     Active Substance: PREDNISONE
  12. METOPROLOL [Concomitant]
     Active Substance: METOPROLOL
  13. CIPROFLOXACIN [Concomitant]
     Active Substance: CIPROFLOXACIN
     Dates: start: 20160718, end: 20160823
  14. NOVOLOG [Concomitant]
     Active Substance: INSULIN ASPART
  15. LOVAZA [Concomitant]
     Active Substance: OMEGA-3-ACID ETHYL ESTERS
  16. ONDANSETRON [Concomitant]
     Active Substance: ONDANSETRON
  17. RAMIPRIL [Concomitant]
     Active Substance: RAMIPRIL
     Dates: start: 20101011, end: 20101130
  18. KETOROLAC [Concomitant]
     Active Substance: KETOROLAC TROMETHAMINE
     Dates: start: 20160830
  19. TOBRAMYCIN [Concomitant]
     Active Substance: TOBRAMYCIN
     Dates: start: 20160828
  20. CEFUROXIME [Concomitant]
     Active Substance: CEFUROXIME
     Dates: start: 20180304
  21. CEPHALEXIN [Concomitant]
     Active Substance: CEPHALEXIN
     Dates: start: 20140723
  22. PRAVASTATIN [Concomitant]
     Active Substance: PRAVASTATIN
     Dates: start: 20091204, end: 20111122
  23. AMOXICILLIN [Concomitant]
     Active Substance: AMOXICILLIN
     Dates: start: 20100915, end: 20111108
  24. DIOVAN [Concomitant]
     Active Substance: VALSARTAN
     Dates: start: 20110124, end: 20110601
  25. BUMETANIDE [Concomitant]
     Active Substance: BUMETANIDE
     Dates: start: 20091204, end: 20120419
  26. FAMOTIDINE [Concomitant]
     Active Substance: FAMOTIDINE
     Dates: start: 2016
  27. NIASPAN [Concomitant]
     Active Substance: NIACIN
     Dates: start: 2016
  28. HECTOROL [Concomitant]
     Active Substance: DOXERCALCIFEROL
     Dates: start: 2016

REACTIONS (2)
  - Chronic kidney disease [Not Recovered/Not Resolved]
  - Renal injury [Unknown]

NARRATIVE: CASE EVENT DATE: 20100302
